FAERS Safety Report 6904633-X (Version None)
Quarter: 2010Q3

REPORT INFORMATION
  Report Type: 
  Country: None (occurrence: None)
  Receive Date: 20100804
  Receipt Date: 20090623
  Transmission Date: 20110219
  Serious: No
  Sender: FDA-Public Use
  Company Number: US-PFIZER INC-2009231640

PATIENT
  Sex: Female
  Weight: 72.562 kg

DRUGS (5)
  1. LYRICA [Suspect]
     Indication: NEURALGIA
     Dosage: 75 MG, 3X/DAY
     Dates: start: 20090101
  2. ZYRTEC [Concomitant]
     Dosage: UNK
  3. FLUOXETINE [Concomitant]
     Dosage: UNK
  4. LORAZEPAM [Concomitant]
  5. AMBIEN [Concomitant]

REACTIONS (1)
  - WEIGHT INCREASED [None]
